FAERS Safety Report 14600978 (Version 5)
Quarter: 2021Q4

REPORT INFORMATION
  Report Type: Report from Study
  Country: US (occurrence: US)
  Receive Date: 20180305
  Receipt Date: 20211104
  Transmission Date: 20220303
  Serious: Yes (Death, Hospitalization, Other)
  Sender: FDA-Public Use
  Company Number: US-BOEHRINGERINGELHEIM-2018-BI-011908

PATIENT
  Age: 59 Year
  Sex: Female
  Weight: 57.87 kg

DRUGS (8)
  1. AFATINIB [Suspect]
     Active Substance: AFATINIB
     Indication: Neoplasm
     Route: 048
     Dates: start: 20161121
  2. AFATINIB [Suspect]
     Active Substance: AFATINIB
     Dates: start: 20170104
  3. LEVOTHYROXINE [Concomitant]
     Active Substance: LEVOTHYROXINE
     Indication: Product used for unknown indication
     Route: 065
  4. VITAMINS [Concomitant]
     Active Substance: VITAMINS
     Indication: Product used for unknown indication
     Route: 065
  5. LORAZEPAM [Concomitant]
     Active Substance: LORAZEPAM
     Indication: Product used for unknown indication
     Route: 065
  6. PROCHLORPERAZINE [Concomitant]
     Active Substance: PROCHLORPERAZINE
     Indication: Product used for unknown indication
     Route: 065
  7. LOPERAMIDE [Concomitant]
     Active Substance: LOPERAMIDE
     Indication: Product used for unknown indication
     Route: 065
  8. IBUPROFEN [Concomitant]
     Active Substance: IBUPROFEN
     Indication: Product used for unknown indication
     Route: 065

REACTIONS (9)
  - Sepsis [Fatal]
  - Anal haemorrhage [Unknown]
  - Anaemia [Unknown]
  - Bone marrow failure [Unknown]
  - Platelet count decreased [Unknown]
  - Rash maculo-papular [Unknown]
  - Diarrhoea [Recovered/Resolved]
  - Neutrophil count decreased [Unknown]
  - White blood cell count decreased [Unknown]

NARRATIVE: CASE EVENT DATE: 20161219
